FAERS Safety Report 4541951-7 (Version None)
Quarter: 2004Q4

REPORT INFORMATION
  Report Type: 
  Country: None (occurrence: None)
  Receive Date: 20041230
  Receipt Date: 20041028
  Transmission Date: 20050328
  Serious: Yes (Life-Threatening, Hospitalization)
  Sender: FDA-Public Use
  Company Number: US-AMGEN-US097728

PATIENT
  Sex: Female

DRUGS (13)
  1. ENBREL [Suspect]
     Indication: RHEUMATOID ARTHRITIS
     Route: 058
     Dates: start: 20021201, end: 20041016
  2. PREDNISONE [Suspect]
     Route: 048
     Dates: start: 19980101
  3. METHOTREXATE [Suspect]
     Route: 058
     Dates: start: 20010901, end: 20041016
  4. LOPID [Concomitant]
  5. SYNTHROID [Concomitant]
  6. PROCARDIA XL [Concomitant]
  7. DYAZIDE [Concomitant]
  8. FOLIC ACID [Concomitant]
  9. PEPCID [Concomitant]
  10. ACTONEL (PROCTOR + GAMBLE) [Concomitant]
  11. PILOCARPINE HYDROCHLORIDE [Concomitant]
  12. LANTUS [Concomitant]
  13. INSULIN ASPART [Concomitant]

REACTIONS (6)
  - ACUTE RESPIRATORY DISTRESS SYNDROME [None]
  - ASTHENIA [None]
  - HYPOTENSION [None]
  - PNEUMONIA [None]
  - RESPIRATORY FAILURE [None]
  - SEPSIS [None]
